FAERS Safety Report 6892313-9 (Version None)
Quarter: 2010Q3

REPORT INFORMATION
  Report Type: 
  Country: None (occurrence: None)
  Receive Date: 20100731
  Receipt Date: 20080326
  Transmission Date: 20110219
  Serious: No
  Sender: FDA-Public Use
  Company Number: US-PFIZER INC-2008026895

PATIENT
  Age: 50 Year
  Sex: Male

DRUGS (2)
  1. NEURONTIN [Suspect]
  2. DRUG, UNSPECIFIED [Concomitant]

REACTIONS (2)
  - HYPOAESTHESIA [None]
  - PARAESTHESIA [None]
